FAERS Safety Report 9723189 (Version 1)
Quarter: 2013Q4

REPORT INFORMATION
  Report Type: Spontaneous
  Country: US (occurrence: None)
  Receive Date: 20131127
  Receipt Date: 20131127
  Transmission Date: 20140711
  Serious: Yes (Life-Threatening)
  Sender: FDA-Public Use
  Company Number: None

PATIENT
  Age: 74 Year
  Sex: Female
  Weight: 65.77 kg

DRUGS (3)
  1. AZITHROMYCIN [Suspect]
     Dosage: 500 MG. ONCE A DAY /5 DAYS AND REFILLED FOR ONCE A DAY 15 DAYS FINISHED THE LAST 10 PILLS ON -07-13  BY MOUTH
     Dates: start: 20130926, end: 20131007
  2. ASPIRINI [Concomitant]
  3. ONCER A DAY VITAMINS-NATUREMADE MULTI FOR HER [Concomitant]

REACTIONS (2)
  - Hypersensitivity [None]
  - Angioedema [None]
